FAERS Safety Report 7457398-X (Version None)
Quarter: 2011Q2

REPORT INFORMATION
  Report Type: 
  Country: None (occurrence: None)
  Receive Date: 20110503
  Receipt Date: 20110503
  Transmission Date: 20111010
  Serious: Yes (Other)
  Sender: FDA-Public Use
  Company Number: None

PATIENT
  Age: 36 Year
  Sex: Female
  Weight: 81.6475 kg

DRUGS (1)
  1. AVELOX [Suspect]
     Indication: SINUSITIS
     Dosage: 400MGS ONCE A DAY PO
     Route: 048
     Dates: start: 20110428, end: 20110430

REACTIONS (12)
  - EMOTIONAL DISORDER [None]
  - DISSOCIATIVE DISORDER [None]
  - FATIGUE [None]
  - SOMNOLENCE [None]
  - RESTLESSNESS [None]
  - DIZZINESS [None]
  - DEPRESSION [None]
  - NERVOUSNESS [None]
  - MIDDLE INSOMNIA [None]
  - FEELING OF DESPAIR [None]
  - GASTRIC DISORDER [None]
  - FEELING ABNORMAL [None]
